FAERS Safety Report 8682547 (Version 4)
Quarter: 2013Q3

REPORT INFORMATION
  Report Type: Report from Study
  Country: GB (occurrence: GB)
  Receive Date: 20120725
  Receipt Date: 20130828
  Transmission Date: 20140515
  Serious: Yes (Death, Life-Threatening, Hospitalization)
  Sender: FDA-Public Use
  Company Number: GB-CELGENEUS-167-C4047-12070808

PATIENT
  Age: 65 Year
  Sex: Female
  Weight: 71.8 kg

DRUGS (43)
  1. DEXAMETHASONE [Suspect]
     Indication: PLASMA CELL MYELOMA
     Dosage: 40 MILLIGRAM
     Route: 065
     Dates: start: 20120516
  2. DEXAMETHASONE [Suspect]
     Dosage: 40 MILLIGRAM
     Route: 065
     Dates: start: 20120613, end: 20120622
  3. DEXAMETHASONE [Suspect]
     Dosage: 40 MILLIGRAM
     Route: 065
     Dates: end: 20120709
  4. DEXAMETHASONE [Suspect]
     Dosage: 40 MILLIGRAM
     Route: 065
     Dates: start: 20120711, end: 20120713
  5. THALIDOMIDE [Suspect]
     Indication: PLASMA CELL MYELOMA
     Route: 048
     Dates: start: 20120710, end: 20120715
  6. PROPRANOLOL [Concomitant]
     Indication: ANXIETY
     Dosage: 20 MILLIGRAM
     Route: 065
     Dates: start: 200907
  7. LANSOPRAZOLE [Concomitant]
     Indication: GASTROOESOPHAGEAL REFLUX DISEASE
     Dosage: 30 MILLIGRAM
     Route: 065
     Dates: start: 2008
  8. BENZYL PENICILLIN [Concomitant]
     Indication: PNEUMONIA
     Dosage: 4.8 GRAM
     Route: 065
     Dates: start: 20120522
  9. BETAHISTINE [Concomitant]
     Indication: PRODUCT USED FOR UNKNOWN INDICATION
     Dosage: 48 MILLIGRAM
     Route: 065
     Dates: start: 20120525
  10. PREGABALIN [Concomitant]
     Indication: NEUROPATHY PERIPHERAL
     Dosage: 150 MILLIGRAM
     Route: 065
     Dates: start: 20120525
  11. ZOMETA [Concomitant]
     Indication: PROPHYLAXIS
     Route: 065
     Dates: start: 20120516
  12. ZOMETA [Concomitant]
     Route: 041
     Dates: start: 20120707, end: 20120707
  13. CIPROFLOXACIN [Concomitant]
     Indication: INFECTION PROPHYLAXIS
     Dosage: 1500 MILLIGRAM
     Route: 065
     Dates: start: 20120628
  14. ALLOPURINOL [Concomitant]
     Indication: BLOOD URIC ACID INCREASED
     Dosage: 300 MILLIGRAM
     Route: 065
     Dates: start: 20120605
  15. METATONE [Concomitant]
     Indication: NUTRITIONAL SUPPLEMENTATION
     Dosage: 1 DOSAGE FORMS
     Route: 065
     Dates: start: 20120603
  16. ACTIMEL [Concomitant]
     Indication: NUTRITIONAL SUPPLEMENTATION
     Dosage: 1 DOSAGE FORMS
     Route: 065
     Dates: start: 20120603
  17. NURIEK HONEY / GLYCERIN [Concomitant]
     Indication: NUTRITIONAL SUPPLEMENTATION
     Dosage: 2 DOSAGE FORMS
     Route: 065
     Dates: start: 20120602
  18. PIRITON [Concomitant]
     Indication: PRODUCT USED FOR UNKNOWN INDICATION
     Route: 061
     Dates: start: 20120605
  19. FLUTICASONE [Concomitant]
     Indication: PRODUCT USED FOR UNKNOWN INDICATION
     Route: 065
     Dates: start: 20120622
  20. RED BLOOD CELLS [Concomitant]
     Indication: HAEMOGLOBIN DECREASED
     Route: 041
     Dates: start: 20120606, end: 20120606
  21. RED BLOOD CELLS [Concomitant]
     Route: 041
     Dates: start: 20120615, end: 20120615
  22. RED BLOOD CELLS [Concomitant]
     Route: 041
     Dates: start: 20120629, end: 20120629
  23. RED BLOOD CELLS [Concomitant]
     Route: 041
     Dates: start: 20120630, end: 20120630
  24. RED BLOOD CELLS [Concomitant]
     Dosage: ONCE, AS NEEDED
     Route: 041
     Dates: start: 20120706, end: 20120707
  25. RED BLOOD CELLS [Concomitant]
     Dosage: PRN
     Route: 041
     Dates: start: 20120707, end: 20120707
  26. RED BLOOD CELLS [Concomitant]
     Route: 041
     Dates: start: 20120713, end: 20120713
  27. PLATELETS [Concomitant]
     Indication: PLATELET COUNT DECREASED
     Route: 065
     Dates: start: 20120705, end: 20120705
  28. PROPRANALOC [Concomitant]
     Indication: ANXIETY
     Dosage: 20 MILLIGRAM
     Route: 065
     Dates: start: 200507
  29. TEICOPLANIN [Concomitant]
     Indication: LOWER RESPIRATORY TRACT INFECTION
     Dosage: 800 MILLIGRAM
     Route: 041
     Dates: start: 20120710, end: 20120716
  30. TAZOCIN [Concomitant]
     Indication: LOWER RESPIRATORY TRACT INFECTION
     Dosage: 18 MILLIGRAM
     Route: 041
     Dates: start: 20120709, end: 20120716
  31. TAZOCIN [Concomitant]
     Indication: PNEUMONIA
     Route: 065
  32. METRONIDAZOLE [Concomitant]
     Indication: LOWER RESPIRATORY TRACT INFECTION
     Dosage: 1500 MILLIGRAM
     Route: 041
     Dates: start: 20120708, end: 20120712
  33. SALBUTAMOL [Concomitant]
     Indication: DYSPNOEA
     Dosage: 10 MILLIGRAM
     Route: 065
     Dates: start: 20120712, end: 20120712
  34. NORMAL SALINE [Concomitant]
     Indication: DYSPNOEA
     Dosage: 10 MILLILITER
     Route: 041
     Dates: start: 20120707, end: 20120707
  35. NORMAL SALINE [Concomitant]
     Route: 041
     Dates: start: 20120709, end: 20120712
  36. NORMAL SALINE [Concomitant]
     Dosage: 1 LITERS
     Route: 065
     Dates: start: 20120712, end: 20120712
  37. NORMAL SALINE [Concomitant]
     Dosage: 4 DOSAGE FORMS
     Route: 065
     Dates: start: 20120712, end: 20120712
  38. NORMAL SALINE [Concomitant]
     Dosage: 2 LITERS
     Route: 041
     Dates: start: 20120709, end: 20120709
  39. NORMAL SALINE [Concomitant]
     Dosage: 1 LITERS
     Route: 065
     Dates: start: 20120711, end: 20120711
  40. NACL [Concomitant]
     Indication: PRODUCT USED FOR UNKNOWN INDICATION
     Dosage: 3 LITERS
     Route: 041
     Dates: start: 20120707, end: 20120708
  41. POTASSIUM CHLORIDE [Concomitant]
     Indication: PRODUCT USED FOR UNKNOWN INDICATION
     Route: 041
     Dates: start: 201207, end: 20120712
  42. CODEINE PHOSPHATE [Concomitant]
     Indication: PRODUCT USED FOR UNKNOWN INDICATION
     Route: 048
     Dates: start: 20120707
  43. PALLIATIVE CARE [Concomitant]
     Indication: PALLIATIVE CARE
     Route: 065

REACTIONS (5)
  - General physical health deterioration [Fatal]
  - Hypercalcaemia [Not Recovered/Not Resolved]
  - Hyperviscosity syndrome [Not Recovered/Not Resolved]
  - Pulmonary oedema [Recovered/Resolved]
  - Cardiac failure [Not Recovered/Not Resolved]
